FAERS Safety Report 5064324-X (Version None)
Quarter: 2006Q3

REPORT INFORMATION
  Report Type: 
  Country: None (occurrence: None)
  Receive Date: 20060725
  Receipt Date: 20060712
  Transmission Date: 20061208
  Serious: Yes (Hospitalization, Other)
  Sender: FDA-Public Use
  Company Number: HQWYE198120JUL06

PATIENT
  Age: 51 Year
  Sex: Female
  Weight: 120.76 kg

DRUGS (8)
  1. EFFEXOR XR [Suspect]
     Indication: DEPRESSION
     Dosage: 37.5  MG 1X PER 1 DAY; 75 MG 1X PER 1 DAY; 150 MG 1X PER 1 DAY; 225 MG 1X PER 1 DAY
     Dates: start: 20060511, end: 20060513
  2. EFFEXOR XR [Suspect]
     Indication: DEPRESSION
     Dosage: 37.5  MG 1X PER 1 DAY; 75 MG 1X PER 1 DAY; 150 MG 1X PER 1 DAY; 225 MG 1X PER 1 DAY
     Dates: start: 20060514, end: 20060529
  3. EFFEXOR XR [Suspect]
     Indication: DEPRESSION
     Dosage: 37.5  MG 1X PER 1 DAY; 75 MG 1X PER 1 DAY; 150 MG 1X PER 1 DAY; 225 MG 1X PER 1 DAY
     Dates: start: 20060530, end: 20060611
  4. EFFEXOR XR [Suspect]
     Indication: DEPRESSION
     Dosage: 37.5  MG 1X PER 1 DAY; 75 MG 1X PER 1 DAY; 150 MG 1X PER 1 DAY; 225 MG 1X PER 1 DAY
     Dates: start: 20060612, end: 20060701
  5. ABILIFY [Suspect]
     Indication: DEPRESSION
     Dosage: 5 MG 1X PER 1 DAY
     Dates: start: 20060530, end: 20060701
  6. ATENOLOL [Concomitant]
  7. IODOQUINOL (DIIODOHYDROXYQUINOLINE) [Concomitant]
  8. HYDROCORTISONE [Concomitant]

REACTIONS (8)
  - BLOOD PRESSURE DIASTOLIC DECREASED [None]
  - BLOOD PRESSURE SYSTOLIC INCREASED [None]
  - CONFUSIONAL STATE [None]
  - DEPERSONALISATION [None]
  - FATIGUE [None]
  - MEMORY IMPAIRMENT [None]
  - SOMNOLENCE [None]
  - TRANSIENT ISCHAEMIC ATTACK [None]
